FAERS Safety Report 16740462 (Version 1)
Quarter: 2019Q3

REPORT INFORMATION
  Report Type: Spontaneous
  Country: DK (occurrence: DK)
  Receive Date: 20190826
  Receipt Date: 20190826
  Transmission Date: 20191005
  Serious: Yes (Death, Hospitalization, Other)
  Sender: FDA-Public Use
  Company Number: DK-MYLANLABS-2019M1079239

PATIENT
  Age: 17 Year
  Sex: Male

DRUGS (12)
  1. CISPLATIN. [Suspect]
     Active Substance: CISPLATIN
     Indication: HEPATOCELLULAR CARCINOMA
     Dosage: 100 MG/M2, TOTAL
     Route: 065
  2. CISPLATIN. [Suspect]
     Active Substance: CISPLATIN
     Dosage: GIVEN AS FIVE SERIES OF COMBINATION THERAPY (GCT THEREPY) GIVEN ON DAY 1 OF A 3-WEEK CYCLE
     Route: 065
  3. DOCETAXEL. [Suspect]
     Active Substance: DOCETAXEL
     Indication: HEPATOCELLULAR CARCINOMA
     Dosage: GIVEN AS FIVE SERIES OF COMBINATION THERAPY (GCT THEREPY) GIVEN ON DAY 1 OF A 3-WEEK CYCLE
     Route: 065
  4. PEGFILGRASTIM [Concomitant]
     Active Substance: PEGFILGRASTIM
     Indication: HEPATOCELLULAR CARCINOMA
     Dosage: ON DAY 2 OF EACH CYCLE
     Route: 058
  5. SORAFENIB [Suspect]
     Active Substance: SORAFENIB
     Dosage: 400 MG, BID
     Route: 048
  6. GEMCITABINE. [Suspect]
     Active Substance: GEMCITABINE
     Dosage: 1000 MG/M2, DAY 1 AND DAY 8
     Route: 065
  7. OXALIPLATIN. [Suspect]
     Active Substance: OXALIPLATIN
     Indication: HEPATOCELLULAR CARCINOMA
     Dosage: 85 MILLIGRAM/SQ. METER, BIWEEKLY
     Route: 065
  8. SORAFENIB [Suspect]
     Active Substance: SORAFENIB
     Indication: HEPATOCELLULAR CARCINOMA
     Dosage: 400 MG, QD
     Route: 065
  9. TAXOL [Suspect]
     Active Substance: PACLITAXEL
     Indication: HEPATOCELLULAR CARCINOMA
     Dosage: 175 MG/M2 ON DAY 1 IN A 3-WEEK CYCLE
     Route: 065
  10. SORAFENIB [Suspect]
     Active Substance: SORAFENIB
     Dosage: 200 MG, QD
     Route: 048
  11. GEMCITABINE. [Suspect]
     Active Substance: GEMCITABINE
     Indication: HEPATOCELLULAR CARCINOMA
     Dosage: GIVEN WITH OXALIPLATIN,1000 MG/M2 EVERY SECOND WEEK
     Route: 065
  12. ERLOTINIB [Concomitant]
     Active Substance: ERLOTINIB
     Indication: HEPATOCELLULAR CARCINOMA
     Dosage: 100 MILLIGRAM, QD
     Route: 048

REACTIONS (16)
  - Death [Fatal]
  - Hepatocellular carcinoma [Unknown]
  - Pruritus [Unknown]
  - Vomiting [Recovered/Resolved]
  - Rash [Unknown]
  - Malignant neoplasm progression [Fatal]
  - Paraesthesia [Recovered/Resolved]
  - Decreased appetite [Recovered/Resolved]
  - Tinnitus [Recovered/Resolved]
  - Hepatic enzyme increased [Unknown]
  - General physical health deterioration [Unknown]
  - Neutropenia [Unknown]
  - Diarrhoea [Recovered/Resolved]
  - Alopecia [Recovered/Resolved]
  - Anaemia [Recovered/Resolved]
  - Drug ineffective [Unknown]
